FAERS Safety Report 4362575-0 (Version None)
Quarter: 2004Q2

REPORT INFORMATION
  Report Type: 
  Country: None (occurrence: None)
  Receive Date: 20040520
  Receipt Date: 20040507
  Transmission Date: 20050107
  Serious: Yes (Other)
  Sender: FDA-Public Use
  Company Number: US-JNJFOC-20040501367

PATIENT
  Age: 63 Year
  Sex: Female
  Weight: 61.2356 kg

DRUGS (9)
  1. INFLIXIMAB (INFLIXIMAB, RECOMBINANT) LYOPHILIZED POWDER [Suspect]
     Indication: RHEUMATOID ARTHRITIS
     Dosage: 200 MG, INTRAVENOUS
     Route: 042
     Dates: start: 20010511
  2. ARAVA [Concomitant]
  3. METHOTREXATE [Concomitant]
  4. FOLIC ACID [Concomitant]
  5. SULINDAC [Concomitant]
  6. ZESTRIL [Concomitant]
  7. OSCAL (CALCIUM CARBONATE) [Concomitant]
  8. FEREX FORTE (ALL OTHER THERAPEUTIC PRODUCTS) [Concomitant]
  9. NADOLOL [Concomitant]

REACTIONS (1)
  - BASAL CELL CARCINOMA [None]
